FAERS Safety Report 6072481-1 (Version None)
Quarter: 2009Q1

REPORT INFORMATION
  Report Type: 
  Country: None (occurrence: None)
  Receive Date: 20090210
  Receipt Date: 20090129
  Transmission Date: 20090719
  Serious: Yes (Hospitalization)
  Sender: FDA-Public Use
  Company Number: NL-ROCHE-611855

PATIENT
  Sex: Male

DRUGS (1)
  1. BONIVA [Suspect]
     Indication: BONE DISORDER
     Route: 048
     Dates: start: 20080501, end: 20080501

REACTIONS (3)
  - MUSCULAR WEAKNESS [None]
  - PYREXIA [None]
  - RASH [None]
